FAERS Safety Report 21151919 (Version 3)
Quarter: 2023Q4

REPORT INFORMATION
  Report Type: Spontaneous
  Country: US (occurrence: US)
  Receive Date: 20220730
  Receipt Date: 20231121
  Transmission Date: 20240109
  Serious: No
  Sender: FDA-Public Use
  Company Number: US-SA-SAC20220721000546

PATIENT
  Age: 79 Year
  Sex: Male

DRUGS (2)
  1. DUPIXENT [Suspect]
     Active Substance: DUPILUMAB
     Indication: Upper respiratory tract infection
     Dosage: 300 MG, QOW
     Route: 058
     Dates: start: 202201, end: 2023
  2. DUPIXENT [Suspect]
     Active Substance: DUPILUMAB
     Dosage: 300 MG, QOW
     Route: 058
     Dates: start: 2023

REACTIONS (11)
  - Paraesthesia [Unknown]
  - Weight decreased [Unknown]
  - Hypotension [Unknown]
  - Urinary tract infection [Unknown]
  - Dizziness [Unknown]
  - Tremor [Unknown]
  - Arthralgia [Unknown]
  - Peripheral swelling [Unknown]
  - Vomiting [Unknown]
  - Rhinorrhoea [Unknown]
  - Product use in unapproved indication [Unknown]

NARRATIVE: CASE EVENT DATE: 20220101
